FAERS Safety Report 5338314-3 (Version None)
Quarter: 2007Q2

REPORT INFORMATION
  Report Type: 
  Country: None (occurrence: None)
  Receive Date: 20070405
  Receipt Date: 20061113
  Transmission Date: 20071010
  Serious: No
  Sender: FDA-Public Use
  Company Number: US200611002194

PATIENT
  Age: 42 Year
  Sex: Female

DRUGS (2)
  1. CYMBALTA [Suspect]
     Indication: DEPRESSION
     Dosage: 30 MG
     Dates: start: 20060101, end: 20060101
  2. CYMBALTA [Suspect]
     Indication: DEPRESSION
     Dosage: 30 MG
     Dates: start: 20061001

REACTIONS (4)
  - COMMUNICATION DISORDER [None]
  - FATIGUE [None]
  - NAUSEA [None]
  - WEIGHT DECREASED [None]
